FAERS Safety Report 15065133 (Version 1)
Quarter: 2018Q2

REPORT INFORMATION
  Report Type: Report from Study
  Country: BR (occurrence: BR)
  Receive Date: 20180626
  Receipt Date: 20180626
  Transmission Date: 20180711
  Serious: Yes (Hospitalization, Other)
  Sender: FDA-Public Use
  Company Number: BR-UCBSA-2018027124

PATIENT
  Age: 77 Year
  Sex: Male
  Weight: 39 kg

DRUGS (3)
  1. PROLOPA [Concomitant]
     Active Substance: BENSERAZIDE\LEVODOPA
     Indication: PARKINSON^S DISEASE
     Dosage: 125/25MG (VIA NASOENTERAL TUBE)
     Dates: start: 1990
  2. ROTIGOTINE [Suspect]
     Active Substance: ROTIGOTINE
     Indication: PARKINSON^S DISEASE
     Dosage: 6 MG, ONCE DAILY (QD)
     Route: 062
  3. EBIXA [Concomitant]
     Active Substance: MEMANTINE HYDROCHLORIDE
     Indication: PARKINSON^S DISEASE
     Dosage: VIA NASOENTERAL TUBE)

REACTIONS (7)
  - Muscular weakness [Not Recovered/Not Resolved]
  - Prostate cancer [Recovered/Resolved]
  - Cognitive disorder [Not Recovered/Not Resolved]
  - Balance disorder [Unknown]
  - Fall [Recovered/Resolved]
  - Weight decreased [Not Recovered/Not Resolved]
  - Pneumonia aspiration [Recovering/Resolving]

NARRATIVE: CASE EVENT DATE: 2016
